FAERS Safety Report 6894402-1 (Version None)
Quarter: 2010Q3

REPORT INFORMATION
  Report Type: 
  Country: None (occurrence: None)
  Receive Date: 20100802
  Receipt Date: 20100727
  Transmission Date: 20110219
  Serious: Yes (Death)
  Sender: FDA-Public Use
  Company Number: DE-ELI_LILLY_AND_COMPANY-DE201007006597

PATIENT
  Age: 40 Year
  Sex: Female
  Weight: 62 kg

DRUGS (3)
  1. GEMCITABINE HCL [Suspect]
     Indication: BREAST CANCER
     Dosage: 1790 MG, UNKNOWN
     Route: 042
     Dates: start: 20061109, end: 20061228
  2. ZOLEDRONIC ACID [Suspect]
     Indication: BREAST CANCER
     Dosage: 4 MG, UNKNOWN
     Route: 042
     Dates: start: 20070126, end: 20080303
  3. DEXAMETHASONE [Concomitant]
     Dosage: UNK, UNKNOWN
     Route: 065

REACTIONS (1)
  - METASTASES TO MENINGES [None]
